FAERS Safety Report 8580604-5 (Version None)
Quarter: 2012Q3

REPORT INFORMATION
  Report Type: 
  Country: None (occurrence: None)
  Receive Date: 20120809
  Receipt Date: 20120730
  Transmission Date: 20120928
  Serious: Yes (Hospitalization)
  Sender: FDA-Public Use
  Company Number: TW-AMGEN-TWNSP2012043925

PATIENT
  Age: 33 Year
  Sex: Female

DRUGS (7)
  1. PREDNISOLONE [Concomitant]
     Indication: ANKYLOSING SPONDYLITIS
     Dosage: 5 MG, TWO TIMES PER DAY
     Route: 048
     Dates: start: 20080101, end: 20120711
  2. ISONIAZID [Suspect]
     Indication: PROPHYLAXIS
     Dosage: 300 MG, ONCE PER DAY
     Route: 048
     Dates: start: 20120509, end: 20120711
  3. SULFASALAZINE [Concomitant]
     Indication: ANKYLOSING SPONDYLITIS
     Dosage: 1000 MG, TWO TIMES PER DAY
     Route: 048
     Dates: start: 20080101, end: 20120711
  4. VOLTAREN [Concomitant]
     Indication: ANKYLOSING SPONDYLITIS
     Dosage: 75 MG, TWO TIMES PER DAY
     Route: 048
     Dates: start: 20080101, end: 20120711
  5. ULTRACET [Concomitant]
     Indication: ANKYLOSING SPONDYLITIS
     Dosage: 1 DF, TWO TIMES PER DAY
     Route: 048
     Dates: start: 20080101, end: 20120711
  6. ENBREL [Suspect]
     Indication: ANKYLOSING SPONDYLITIS
     Dosage: 25 MG, BIW
     Route: 058
     Dates: start: 20120530, end: 20120707
  7. BACLOFEN [Concomitant]
     Indication: ANKYLOSING SPONDYLITIS
     Dosage: 5 MG, TWO TIMES PER DAY
     Route: 048
     Dates: start: 20080101, end: 20120711

REACTIONS (3)
  - JAUNDICE CHOLESTATIC [None]
  - OBSTRUCTION [None]
  - HEPATITIS ACUTE [None]
